FAERS Safety Report 10337919 (Version 1)
Quarter: 2014Q3

REPORT INFORMATION
  Report Type: Spontaneous
  Country: US (occurrence: US)
  Receive Date: 20140724
  Receipt Date: 20140724
  Transmission Date: 20150326
  Serious: No
  Sender: FDA-Public Use
  Company Number: US-UNITED THERAPEUTICS-UTC-047240

PATIENT
  Sex: Female
  Weight: 65.77 kg

DRUGS (3)
  1. SILDENAFIL [Concomitant]
     Active Substance: SILDENAFIL
  2. COUMADIN [Concomitant]
     Active Substance: WARFARIN SODIUM
  3. REMODULIN [Suspect]
     Active Substance: TREPROSTINIL
     Dosage: 0.074 UG/KG/MIN
     Route: 058
     Dates: start: 20101005

REACTIONS (2)
  - Device alarm issue [Recovered/Resolved]
  - Dizziness [Unknown]
